FAERS Safety Report 7286223-5 (Version None)
Quarter: 2011Q1

REPORT INFORMATION
  Report Type: 
  Country: None (occurrence: None)
  Receive Date: 20110210
  Receipt Date: 20110201
  Transmission Date: 20110831
  Serious: Yes (Other)
  Sender: FDA-Public Use
  Company Number: PHHY2010AU72319

PATIENT
  Sex: Female

DRUGS (3)
  1. PANAMAX [Concomitant]
     Route: 048
  2. ACLASTA [Suspect]
     Indication: OSTEOPOROSIS
     Dosage: 5 MG,
     Route: 042
     Dates: start: 20100601
  3. CELEBREX [Concomitant]
     Dosage: 200 MG, PRN

REACTIONS (4)
  - RHEUMATOID ARTHRITIS [None]
  - C-REACTIVE PROTEIN INCREASED [None]
  - ARTHRITIS [None]
  - RED BLOOD CELL SEDIMENTATION RATE INCREASED [None]
